FAERS Safety Report 5976666-1 (Version None)
Quarter: 2008Q4

REPORT INFORMATION
  Report Type: 
  Country: None (occurrence: None)
  Receive Date: 20081201
  Receipt Date: 20081201
  Transmission Date: 20090506
  Serious: Yes (Hospitalization)
  Sender: FDA-Public Use
  Company Number: None

PATIENT
  Sex: Female
  Weight: 68.0396 kg

DRUGS (1)
  1. CRESTOR [Suspect]
     Indication: BLOOD CHOLESTEROL
     Dosage: 1/2 OF 10 MG TAB ONCE A DAY BY MOUTH
     Route: 048
     Dates: start: 20080813, end: 20080823

REACTIONS (3)
  - ABDOMINAL DISCOMFORT [None]
  - CHROMATURIA [None]
  - HEADACHE [None]
